FAERS Safety Report 17940126 (Version 2)
Quarter: 2020Q4

REPORT INFORMATION
  Report Type: Spontaneous
  Country: DE (occurrence: DE)
  Receive Date: 20200624
  Receipt Date: 20201111
  Transmission Date: 20210113
  Serious: Yes (Other)
  Sender: FDA-Public Use
  Company Number: DE-BRISTOL-MYERS SQUIBB COMPANY-BMS-2020-043301

PATIENT
  Age: 85 Year
  Sex: Female
  Weight: 62 kg

DRUGS (4)
  1. RAMIPRIL. [Concomitant]
     Active Substance: RAMIPRIL
     Indication: HYPERTENSION
     Dosage: UNK
     Route: 065
  2. ELIQUIS [Suspect]
     Active Substance: APIXABAN
     Indication: ARRHYTHMIA
  3. FLECAINIDE [Concomitant]
     Active Substance: FLECAINIDE
     Indication: HEART RATE
     Dosage: UNK UNK, BID
     Route: 065
  4. ELIQUIS [Suspect]
     Active Substance: APIXABAN
     Indication: CEREBROVASCULAR ACCIDENT PROPHYLAXIS
     Dosage: 5 MILLIGRAM, BID
     Route: 048
     Dates: start: 2015

REACTIONS (7)
  - Impaired healing [Unknown]
  - Arthropathy [Unknown]
  - Polyneuropathy [Unknown]
  - Skin graft failure [Unknown]
  - Phlebitis [Unknown]
  - Skin disorder [Unknown]
  - Tachycardia [Unknown]
